FAERS Safety Report 9392301 (Version 5)
Quarter: 2017Q1

REPORT INFORMATION
  Report Type: Spontaneous
  Country: JP (occurrence: JP)
  Receive Date: 20130710
  Receipt Date: 20170117
  Transmission Date: 20170429
  Serious: Yes (Death, Hospitalization, Other)
  Sender: FDA-Public Use
  Company Number: JP-009507513-1307JPN003226

PATIENT
  Age: 74 Year
  Sex: Male

DRUGS (8)
  1. BASEN [Concomitant]
     Active Substance: VOGLIBOSE
     Indication: PEMPHIGOID
     Dosage: DAILY DOSE UNKNOWN, FORMULATION: POR
     Route: 048
  2. BARACLUDE [Concomitant]
     Active Substance: ENTECAVIR
     Indication: PROPHYLAXIS
     Dosage: UNK
     Route: 048
  3. PREDNISOLONE. [Concomitant]
     Active Substance: PREDNISOLONE
     Indication: PEMPHIGOID
     Dosage: UNK
  4. PREDNISOLONE. [Concomitant]
     Active Substance: PREDNISOLONE
     Dosage: 40 MG, UNK
     Route: 048
  5. PREDNISOLONE. [Concomitant]
     Active Substance: PREDNISOLONE
     Dosage: 60 MG, UNK
     Route: 048
  6. JANUVIA [Suspect]
     Active Substance: SITAGLIPTIN PHOSPHATE
     Indication: TYPE 2 DIABETES MELLITUS
     Dosage: 50 MG, QD
     Route: 048
  7. MINOCYCLINE HYDROCHLORIDE. [Concomitant]
     Active Substance: MINOCYCLINE HYDROCHLORIDE
     Indication: PEMPHIGOID
     Dosage: 200 MG, UNK
     Route: 048
  8. BASEN [Concomitant]
     Active Substance: VOGLIBOSE
     Dosage: UNK
     Route: 048

REACTIONS (5)
  - Asthma [Fatal]
  - Respiratory failure [Fatal]
  - Hypersensitivity [Unknown]
  - Pemphigoid [Unknown]
  - Obliterative bronchiolitis [Fatal]
